FAERS Safety Report 22309806 (Version 1)
Quarter: 2023Q2

REPORT INFORMATION
  Report Type: Spontaneous
  Country: US (occurrence: None)
  Receive Date: 20230510
  Receipt Date: 20230510
  Transmission Date: 20230722
  Serious: Yes (Hospitalization)
  Sender: FDA-Public Use
  Company Number: None

PATIENT
  Age: 52 Year
  Sex: Female

DRUGS (1)
  1. ICATIBANT ACETATE [Suspect]
     Active Substance: ICATIBANT ACETATE
     Indication: Complement deficiency disease
     Dosage: OTHER FREQUENCY : AS NEEDED;?
     Route: 058
     Dates: start: 20211006

REACTIONS (2)
  - Hereditary angioedema [None]
  - Injection site pain [None]

NARRATIVE: CASE EVENT DATE: 20230410
